FAERS Safety Report 18816835 (Version 1)
Quarter: 2021Q1

REPORT INFORMATION
  Report Type: Spontaneous
  Country: GB (occurrence: GB)
  Receive Date: 20210201
  Receipt Date: 20210201
  Transmission Date: 20210419
  Serious: Yes (Hospitalization)
  Sender: FDA-Public Use
  Company Number: GB-JNJFOC-20210139656

PATIENT
  Age: 63 Year
  Sex: Female

DRUGS (12)
  1. INVOKANA [Suspect]
     Active Substance: CANAGLIFLOZIN
     Indication: TYPE 2 DIABETES MELLITUS
     Dosage: EVERY MORNING
     Route: 048
     Dates: end: 20210115
  2. ASPRIN [Concomitant]
     Active Substance: ASPIRIN
     Route: 048
  3. ATORVASTATIN [Concomitant]
     Active Substance: ATORVASTATIN
     Indication: HYPERCHOLESTEROLAEMIA
     Route: 048
  4. COD LIVER OIL [Concomitant]
     Active Substance: COD LIVER OIL
  5. OMEPRAZOLE. [Concomitant]
     Active Substance: OMEPRAZOLE
     Indication: DYSPEPSIA
     Route: 048
  6. VITAMINS NOS [Concomitant]
     Active Substance: VITAMINS
  7. SARS?COV?2 VACCINE [Concomitant]
     Indication: COVID-19 IMMUNISATION
     Route: 051
     Dates: start: 20210108, end: 20210108
  8. EVOREL [Concomitant]
     Indication: HORMONE REPLACEMENT THERAPY
     Route: 062
  9. LYMECYCLINE [Concomitant]
     Active Substance: LYMECYCLINE
     Route: 048
  10. RAMIPRIL. [Concomitant]
     Active Substance: RAMIPRIL
     Indication: HYPERTENSION
     Route: 048
  11. GLICLAZIDE [Concomitant]
     Active Substance: GLICLAZIDE
     Indication: TYPE 2 DIABETES MELLITUS
     Dosage: TAKE IN THE MORNING
     Route: 048
     Dates: start: 20210115
  12. METFORMIN [Concomitant]
     Active Substance: METFORMIN HYDROCHLORIDE
     Indication: TYPE 2 DIABETES MELLITUS
     Dosage: TAKE IN THE MORNING
     Route: 048

REACTIONS (7)
  - Diabetic ketoacidosis [Recovered/Resolved]
  - Chest discomfort [Unknown]
  - Blood urea increased [Unknown]
  - Blood creatinine increased [Unknown]
  - Vomiting [Unknown]
  - Acute kidney injury [Unknown]
  - Dyspepsia [Unknown]

NARRATIVE: CASE EVENT DATE: 20210112
